FAERS Safety Report 8450144 (Version 3)
Quarter: 2014Q3

REPORT INFORMATION
  Report Type: Spontaneous
  Country: US (occurrence: US)
  Receive Date: 20120309
  Receipt Date: 20140805
  Transmission Date: 20150326
  Serious: Yes (Life-Threatening, Hospitalization)
  Sender: FDA-Public Use
  Company Number: US-BAYER-2012-021781

PATIENT
  Age: 21 Year
  Sex: Female
  Weight: 58.96 kg

DRUGS (1)
  1. YASMIN [Suspect]
     Active Substance: DROSPIRENONE\ETHINYL ESTRADIOL
     Indication: CONTRACEPTION

REACTIONS (15)
  - Anhedonia [None]
  - Dyspnoea [None]
  - Anxiety [None]
  - Fatigue [None]
  - Fear of death [None]
  - Hypoaesthesia [None]
  - Paraesthesia [None]
  - Pulmonary embolism [None]
  - Pain [None]
  - Dizziness [None]
  - General physical health deterioration [None]
  - Traumatic lung injury [None]
  - Quality of life decreased [None]
  - Asthenia [None]
  - Chest pain [None]

NARRATIVE: CASE EVENT DATE: 20110321
